FAERS Safety Report 16869286 (Version 2)
Quarter: 2019Q4

REPORT INFORMATION
  Report Type: Spontaneous
  Country: GH (occurrence: GH)
  Receive Date: 20190930
  Receipt Date: 20191126
  Transmission Date: 20200122
  Serious: Yes (Hospitalization, Other)
  Sender: FDA-Public Use
  Company Number: PHHY2019GH225801

PATIENT
  Age: 16 Year
  Sex: Male
  Weight: 59 kg

DRUGS (1)
  1. COARTEM [Suspect]
     Active Substance: ARTEMETHER\LUMEFANTRINE
     Indication: MALARIA
     Dosage: 80 MG, BID
     Route: 048
     Dates: start: 20190921, end: 20190923

REACTIONS (2)
  - Malaria [Not Recovered/Not Resolved]
  - Condition aggravated [Not Recovered/Not Resolved]
